FAERS Safety Report 23817434 (Version 3)
Quarter: 2024Q3

REPORT INFORMATION
  Report Type: Spontaneous
  Country: US (occurrence: US)
  Receive Date: 20240505
  Receipt Date: 20240729
  Transmission Date: 20241017
  Serious: Yes (Disabling)
  Sender: SANOFI AVENTIS
  Company Number: US-SA-SAC20240424001426

PATIENT
  Age: 73 Year
  Sex: Male

DRUGS (23)
  1. DUPIXENT [Suspect]
     Active Substance: DUPILUMAB
     Indication: Dermatitis atopic
     Dosage: 300 MG, QOW
     Route: 058
     Dates: start: 20240328, end: 2024
  2. ALPHA LIPOIC [Concomitant]
  3. ALPHA LIPOIC [Concomitant]
  4. CYMBALTA [Concomitant]
     Active Substance: DULOXETINE HYDROCHLORIDE
  5. CYMBALTA [Concomitant]
     Active Substance: DULOXETINE HYDROCHLORIDE
  6. DICLOFENAC [Concomitant]
     Active Substance: DICLOFENAC
  7. FOLIC ACID [Concomitant]
     Active Substance: FOLIC ACID
  8. FOLIC ACID [Concomitant]
     Active Substance: FOLIC ACID
  9. HYDROCODONE [Concomitant]
     Active Substance: HYDROCODONE
  10. HYDROCODONE [Concomitant]
     Active Substance: HYDROCODONE
  11. MELATONIN [Concomitant]
     Active Substance: MELATONIN
  12. MELATONIN [Concomitant]
     Active Substance: MELATONIN
  13. PRIMIDONE [Concomitant]
     Active Substance: PRIMIDONE
  14. PRIMIDONE [Concomitant]
     Active Substance: PRIMIDONE
  15. SYNTHROID [Concomitant]
     Active Substance: LEVOTHYROXINE SODIUM
  16. SYNTHROID [Concomitant]
     Active Substance: LEVOTHYROXINE SODIUM
  17. TYLENOL [Concomitant]
     Active Substance: ACETAMINOPHEN
  18. TYLENOL [Concomitant]
     Active Substance: ACETAMINOPHEN
  19. VIBRAMYCIN [Concomitant]
     Active Substance: DOXYCYCLINE
  20. VITAMIN B12 [Concomitant]
     Active Substance: CYANOCOBALAMIN
  21. CYCLOBENZAPRINE [Concomitant]
     Active Substance: CYCLOBENZAPRINE
     Dosage: 300 UNK
  22. CYCLOBENZAPRINE [Concomitant]
     Active Substance: CYCLOBENZAPRINE
  23. AUGMENTIN [Concomitant]
     Active Substance: AMOXICILLIN\CLAVULANATE POTASSIUM

REACTIONS (9)
  - Arthralgia [Not Recovered/Not Resolved]
  - Blister infected [Unknown]
  - Purulent discharge [Unknown]
  - Skin weeping [Unknown]
  - Dry skin [Not Recovered/Not Resolved]
  - Skin laceration [Unknown]
  - Pruritus [Not Recovered/Not Resolved]
  - Skin exfoliation [Not Recovered/Not Resolved]
  - Rash [Unknown]

NARRATIVE: CASE EVENT DATE: 20240101
